FAERS Safety Report 11471234 (Version 6)
Quarter: 2016Q1

REPORT INFORMATION
  Report Type: Report from Study
  Country: DE (occurrence: DE)
  Receive Date: 20150908
  Receipt Date: 20160209
  Transmission Date: 20160525
  Serious: Yes (Death, Hospitalization)
  Sender: FDA-Public Use
  Company Number: DE-ABBVIE-15P-062-1456061-00

PATIENT
  Age: 69 Year
  Sex: Female
  Weight: 47 kg

DRUGS (1)
  1. DUODOPA [Suspect]
     Active Substance: CARBIDOPA\LEVODOPA
     Indication: PARKINSON^S DISEASE
     Dosage: MD 8.0ML, CRD 5.5ML/H, ED 2.0ML
     Route: 050
     Dates: start: 20150817, end: 20150904

REACTIONS (11)
  - Respiratory failure [Fatal]
  - Drug effect variable [Unknown]
  - Resuscitation [Not Recovered/Not Resolved]
  - Cerebral haemorrhage [Unknown]
  - Peripheral sensory neuropathy [Unknown]
  - Fall [Not Recovered/Not Resolved]
  - Ileus paralytic [Fatal]
  - Sepsis [Fatal]
  - Subarachnoid haemorrhage [Unknown]
  - Seizure [Recovered/Resolved]
  - Pneumonia [Fatal]

NARRATIVE: CASE EVENT DATE: 20150830
